FAERS Safety Report 24794530 (Version 2)
Quarter: 2025Q3

REPORT INFORMATION
  Report Type: Spontaneous
  Country: JP (occurrence: JP)
  Receive Date: 20241231
  Receipt Date: 20250803
  Transmission Date: 20251020
  Serious: Yes (Other)
  Sender: ALEXION PHARMACEUTICALS
  Company Number: JP-ASTRAZENECA-240146317_013120_P_1

PATIENT
  Age: 37 Year
  Sex: Male
  Weight: 90 kg

DRUGS (11)
  1. DURVALUMAB [Suspect]
     Active Substance: DURVALUMAB
     Indication: Non-small cell lung cancer
     Dosage: 900 MILLIGRAM, Q2W
     Dates: start: 20220405, end: 20220609
  2. Glycyron [Concomitant]
  3. URSODIOL [Concomitant]
     Active Substance: URSODIOL
  4. Bilanoa od [Concomitant]
  5. LASIX [Concomitant]
     Active Substance: FUROSEMIDE
  6. KETOCONAZOLE [Concomitant]
     Active Substance: KETOCONAZOLE
  7. CLINDAMYCIN PHOSPHATE [Concomitant]
     Active Substance: CLINDAMYCIN PHOSPHATE
  8. Myser [Concomitant]
  9. Rinderon [Concomitant]
  10. Heparinoid [Concomitant]
     Route: 065
  11. NADIFLOXACIN [Concomitant]
     Active Substance: NADIFLOXACIN

REACTIONS (5)
  - Autoimmune pancreatitis [Recovering/Resolving]
  - Gastrooesophageal reflux disease [Unknown]
  - Hernia [Unknown]
  - Radiation pneumonitis [Unknown]
  - Diverticulum intestinal [Recovering/Resolving]

NARRATIVE: CASE EVENT DATE: 20220520
